FAERS Safety Report 9228930 (Version 1)
Quarter: 2013Q2

REPORT INFORMATION
  Report Type: Spontaneous
  Country: CA (occurrence: CA)
  Receive Date: 20130412
  Receipt Date: 20130412
  Transmission Date: 20140414
  Serious: Yes (Hospitalization, Other)
  Sender: FDA-Public Use
  Company Number: PHHY2013CA034735

PATIENT
  Age: 79 Year
  Sex: Male

DRUGS (4)
  1. DOCETAXEL [Suspect]
  2. PREDNISONE [Suspect]
     Dosage: 5 MG, UNK
     Route: 048
  3. DEXAMETHASONE [Suspect]
     Dosage: 8 MG, UNK
     Route: 048
  4. ZOLEDRONATE [Concomitant]

REACTIONS (9)
  - Back pain [Unknown]
  - Hip deformity [Recovered/Resolved]
  - Arthralgia [Unknown]
  - Osteonecrosis [Unknown]
  - Movement disorder [Unknown]
  - Local swelling [Unknown]
  - Walking aid user [Unknown]
  - Cushingoid [Unknown]
  - Fatigue [Unknown]
